FAERS Safety Report 10960806 (Version 1)
Quarter: 2015Q1

REPORT INFORMATION
  Report Type: Spontaneous
  Country: NL (occurrence: None)
  Receive Date: 20150325
  Receipt Date: 20150325
  Transmission Date: 20150721
  Serious: Yes (Hospitalization)
  Sender: FDA-Public Use
  Company Number: 2015HINLIT0267

PATIENT
  Age: 55 Year
  Sex: Female

DRUGS (2)
  1. LITHIUM [Suspect]
     Active Substance: LITHIUM CARBONATE
     Indication: BIPOLAR DISORDER
  2. METHOTREXATE (METHOTREXATE) [Suspect]
     Active Substance: METHOTREXATE

REACTIONS (6)
  - Pancytopenia [None]
  - Epistaxis [None]
  - Bone marrow failure [None]
  - Sepsis [None]
  - Acute kidney injury [None]
  - Toxicity to various agents [None]
